FAERS Safety Report 21229752 (Version 1)
Quarter: 2022Q3

REPORT INFORMATION
  Report Type: Spontaneous
  Country: US (occurrence: US)
  Receive Date: 20220818
  Receipt Date: 20220818
  Transmission Date: 20221026
  Serious: No
  Sender: FDA-Public Use
  Company Number: US-MYLANLABS-2022M1086373

PATIENT
  Age: 69 Year
  Sex: Female

DRUGS (1)
  1. IBANDRONIC ACID [Suspect]
     Active Substance: IBANDRONIC ACID
     Indication: Osteoporosis
     Dosage: 3 MILLIGRAM PER MILLILITRE, Q3MONTHS (EVERY 3 MONTHS)
     Route: 042
     Dates: start: 20220809

REACTIONS (1)
  - Vein discolouration [Unknown]

NARRATIVE: CASE EVENT DATE: 20220809
